FAERS Safety Report 18175650 (Version 13)
Quarter: 2021Q2

REPORT INFORMATION
  Report Type: Report from Study
  Country: CA (occurrence: CA)
  Receive Date: 20200820
  Receipt Date: 20210413
  Transmission Date: 20210717
  Serious: Yes (Hospitalization, Other)
  Sender: FDA-Public Use
  Company Number: NVSC2014CA000517

PATIENT
  Age: 64 Year
  Sex: Female

DRUGS (15)
  1. METFORMIN [Concomitant]
     Active Substance: METFORMIN HYDROCHLORIDE
     Indication: PRODUCT USED FOR UNKNOWN INDICATION
     Dosage: 500 MG, BID
     Route: 065
     Dates: start: 2017
  2. METFORMIN [Concomitant]
     Active Substance: METFORMIN HYDROCHLORIDE
     Dosage: 2 DF, QHS (1000 MG) AT BED TIME
     Route: 065
     Dates: start: 2017
  3. SANDOSTATIN LAR DEPOT [Suspect]
     Active Substance: OCTREOTIDE ACETATE
     Indication: NEUROENDOCRINE TUMOUR
     Dosage: 30 MG, QMO (EVERY 4 WEEKS)
     Route: 030
     Dates: start: 20141106
  4. SANDOSTATIN LAR DEPOT [Suspect]
     Active Substance: OCTREOTIDE ACETATE
     Dosage: 30 MG, Q3W
     Route: 030
     Dates: start: 20141106
  5. LUTETIUM (LU 177) [Concomitant]
     Active Substance: LUTETIUM LU-177
     Indication: PRODUCT USED FOR UNKNOWN INDICATION
     Dosage: UNK
     Route: 065
     Dates: start: 20190625
  6. METFORMIN [Concomitant]
     Active Substance: METFORMIN HYDROCHLORIDE
     Dosage: 2000 MG, QD
     Route: 065
  7. MACROBID [Suspect]
     Active Substance: NITROFURANTOIN\NITROFURANTOIN MONOHYDRATE
     Indication: URINARY TRACT INFECTION
     Dosage: UNK
     Route: 065
  8. METFORMIN [Concomitant]
     Active Substance: METFORMIN HYDROCHLORIDE
     Dosage: 1000 MG, QD
     Route: 065
     Dates: start: 2017
  9. EVEROLIMUS. [Concomitant]
     Active Substance: EVEROLIMUS
     Indication: PRODUCT USED FOR UNKNOWN INDICATION
     Dosage: UNK UNK, QD
     Route: 065
     Dates: start: 202011
  10. LUTETIUM (LU 177) [Concomitant]
     Active Substance: LUTETIUM LU-177
     Dosage: UNK
     Route: 065
     Dates: start: 20190903
  11. CORTISONE [Concomitant]
     Active Substance: CORTISONE
     Indication: PRODUCT USED FOR UNKNOWN INDICATION
     Dosage: UNK
     Route: 065
  12. SANDOSTATIN LAR DEPOT [Suspect]
     Active Substance: OCTREOTIDE ACETATE
  13. SANDOSTATIN [Suspect]
     Active Substance: OCTREOTIDE ACETATE
     Indication: NEUROENDOCRINE TUMOUR
     Dosage: 50 UG (TEST DOSE)
     Route: 058
     Dates: start: 20141024, end: 20141024
  14. SANDOSTATIN [Suspect]
     Active Substance: OCTREOTIDE ACETATE
  15. SANDOSTATIN [Suspect]
     Active Substance: OCTREOTIDE ACETATE

REACTIONS (41)
  - Urinary tract infection [Recovered/Resolved]
  - Hepatic lesion [Recovered/Resolved]
  - Fatigue [Not Recovered/Not Resolved]
  - Drug hypersensitivity [Unknown]
  - SARS-CoV-2 test positive [Unknown]
  - Cellulitis [Recovering/Resolving]
  - Malaise [Unknown]
  - Heart rate decreased [Unknown]
  - Nausea [Not Recovered/Not Resolved]
  - Metastases to liver [Unknown]
  - Lymphadenopathy [Unknown]
  - Dyspepsia [Unknown]
  - Blood glucose decreased [Unknown]
  - Renal disorder [Unknown]
  - Diverticulitis [Unknown]
  - Blood pressure increased [Unknown]
  - Ascites [Recovering/Resolving]
  - Renal impairment [Unknown]
  - Neuroendocrine tumour [Unknown]
  - Mass [Recovering/Resolving]
  - Pain [Unknown]
  - Feeling abnormal [Unknown]
  - Blood glucose abnormal [Unknown]
  - Malignant neoplasm progression [Unknown]
  - Hot flush [Unknown]
  - Arthralgia [Unknown]
  - Blood pressure systolic increased [Unknown]
  - Diabetes mellitus [Unknown]
  - Procedural pain [Unknown]
  - Pyrexia [Unknown]
  - Injection site mass [Recovering/Resolving]
  - Pneumonia [Unknown]
  - Abdominal mass [Unknown]
  - Influenza [Unknown]
  - Sinusitis [Recovered/Resolved]
  - Stress [Unknown]
  - Neoplasm progression [Unknown]
  - Inappropriate schedule of product administration [Unknown]
  - Renal failure [Unknown]
  - Ureteric obstruction [Unknown]
  - Nasopharyngitis [Unknown]

NARRATIVE: CASE EVENT DATE: 20141106
